FAERS Safety Report 15100905 (Version 1)
Quarter: 2018Q3

REPORT INFORMATION
  Report Type: Spontaneous
  Country: US (occurrence: US)
  Receive Date: 20180703
  Receipt Date: 20180703
  Transmission Date: 20181010
  Serious: No
  Sender: FDA-Public Use
  Company Number: US-PFIZER INC-2017555765

PATIENT
  Age: 67 Year
  Sex: Female
  Weight: 73 kg

DRUGS (5)
  1. HERCEPTIN [Concomitant]
     Active Substance: TRASTUZUMAB
  2. CARBOPLATIN. [Concomitant]
     Active Substance: CARBOPLATIN
  3. PARAPLATIN [Concomitant]
     Active Substance: CARBOPLATIN
  4. DOCETAXEL. [Suspect]
     Active Substance: DOCETAXEL
     Dosage: 06 CYCLES
     Dates: start: 20140530, end: 20140922
  5. TAXOTERE [Concomitant]
     Active Substance: DOCETAXEL

REACTIONS (1)
  - Alopecia [Not Recovered/Not Resolved]

NARRATIVE: CASE EVENT DATE: 201509
